FAERS Safety Report 18338252 (Version 6)
Quarter: 2025Q3

REPORT INFORMATION
  Report Type: Spontaneous
  Country: EU (occurrence: EU)
  Receive Date: 20201002
  Receipt Date: 20250722
  Transmission Date: 20251020
  Serious: Yes (Hospitalization, Other)
  Sender: MYLAN
  Company Number: EU-SAMSUNG BIOEPIS-SB-2020-28058

PATIENT
  Age: 7 Year
  Sex: Female

DRUGS (28)
  1. METHOTREXATE [Suspect]
     Active Substance: METHOTREXATE
     Indication: Crohn^s disease
  2. METHOTREXATE [Suspect]
     Active Substance: METHOTREXATE
     Route: 065
  3. METHOTREXATE [Suspect]
     Active Substance: METHOTREXATE
     Route: 065
  4. METHOTREXATE [Suspect]
     Active Substance: METHOTREXATE
  5. ADALIMUMAB [Suspect]
     Active Substance: ADALIMUMAB
     Indication: Chronic recurrent multifocal osteomyelitis
     Dosage: 40 MILLIGRAM, BIWEEKLY
     Route: 058
  6. ADALIMUMAB [Suspect]
     Active Substance: ADALIMUMAB
     Indication: Crohn^s disease
     Dosage: 40 MILLIGRAM, BIWEEKLY
  7. ADALIMUMAB [Suspect]
     Active Substance: ADALIMUMAB
     Dosage: 40 MILLIGRAM, BIWEEKLY
  8. ADALIMUMAB [Suspect]
     Active Substance: ADALIMUMAB
     Dosage: 40 MILLIGRAM, BIWEEKLY
     Route: 058
  9. ADALIMUMAB [Suspect]
     Active Substance: ADALIMUMAB
     Route: 058
  10. ADALIMUMAB [Suspect]
     Active Substance: ADALIMUMAB
  11. ADALIMUMAB [Suspect]
     Active Substance: ADALIMUMAB
  12. ADALIMUMAB [Suspect]
     Active Substance: ADALIMUMAB
     Route: 058
  13. USTEKINUMAB [Suspect]
     Active Substance: USTEKINUMAB
     Indication: Crohn^s disease
  14. USTEKINUMAB [Suspect]
     Active Substance: USTEKINUMAB
     Route: 058
  15. USTEKINUMAB [Suspect]
     Active Substance: USTEKINUMAB
     Route: 058
  16. USTEKINUMAB [Suspect]
     Active Substance: USTEKINUMAB
  17. INFLIXIMAB [Suspect]
     Active Substance: INFLIXIMAB
     Indication: Crohn^s disease
  18. INFLIXIMAB [Suspect]
     Active Substance: INFLIXIMAB
  19. INFLIXIMAB [Suspect]
     Active Substance: INFLIXIMAB
     Route: 065
  20. INFLIXIMAB [Suspect]
     Active Substance: INFLIXIMAB
     Route: 065
  21. INFLIXIMAB [Suspect]
     Active Substance: INFLIXIMAB
  22. INFLIXIMAB [Suspect]
     Active Substance: INFLIXIMAB
  23. INFLIXIMAB [Suspect]
     Active Substance: INFLIXIMAB
     Route: 065
  24. INFLIXIMAB [Suspect]
     Active Substance: INFLIXIMAB
     Route: 065
  25. TACROLIMUS [Concomitant]
     Active Substance: TACROLIMUS
     Indication: Crohn^s disease
  26. TACROLIMUS [Concomitant]
     Active Substance: TACROLIMUS
     Route: 065
  27. TACROLIMUS [Concomitant]
     Active Substance: TACROLIMUS
     Route: 065
  28. TACROLIMUS [Concomitant]
     Active Substance: TACROLIMUS

REACTIONS (7)
  - Chronic recurrent multifocal osteomyelitis [Recovering/Resolving]
  - Crohn^s disease [Recovered/Resolved]
  - Psoriasis [Recovered/Resolved]
  - Product use issue [Unknown]
  - Drug ineffective [Unknown]
  - Paradoxical drug reaction [Recovered/Resolved]
  - Therapeutic product effect decreased [Unknown]
